FAERS Safety Report 7234416-5 (Version None)
Quarter: 2011Q1

REPORT INFORMATION
  Report Type: 
  Country: None (occurrence: None)
  Receive Date: 20110119
  Receipt Date: 20110114
  Transmission Date: 20110831
  Serious: Yes (Other)
  Sender: FDA-Public Use
  Company Number: US-PFIZER INC-2011010217

PATIENT
  Sex: Male
  Weight: 65.76 kg

DRUGS (1)
  1. TORISEL [Suspect]
     Indication: RENAL CELL CARCINOMA
     Dosage: 25 MG, WEEKLY
     Dates: start: 20101229, end: 20110105

REACTIONS (2)
  - PLEURAL EFFUSION [None]
  - PERICARDIAL EFFUSION [None]
